FAERS Safety Report 9023831 (Version 1)
Quarter: 2013Q1

REPORT INFORMATION
  Report Type: Spontaneous
  Country: CA (occurrence: CA)
  Receive Date: 20130121
  Receipt Date: 20130121
  Transmission Date: 20140127
  Serious: Yes (Other)
  Sender: FDA-Public Use
  Company Number: CA-US-EMD SERONO, INC.-7187961

PATIENT
  Age: 33 None
  Sex: Female

DRUGS (2)
  1. REBIF [Suspect]
     Indication: RELAPSING-REMITTING MULTIPLE SCLEROSIS
     Route: 058
     Dates: start: 20090226, end: 20100817
  2. REBIF [Suspect]
     Route: 058
     Dates: start: 20101208

REACTIONS (4)
  - Abortion spontaneous [Recovered/Resolved]
  - Menstruation irregular [Unknown]
  - Breast tenderness [Unknown]
  - Maternal exposure during pregnancy [Unknown]
